FAERS Safety Report 6896776-4 (Version None)
Quarter: 2010Q3

REPORT INFORMATION
  Report Type: 
  Country: None (occurrence: None)
  Receive Date: 20100802
  Receipt Date: 20070317
  Transmission Date: 20110219
  Serious: No
  Sender: FDA-Public Use
  Company Number: US-PFIZER INC-2006147709

PATIENT
  Sex: Female

DRUGS (14)
  1. LYRICA [Suspect]
     Indication: DIABETIC NEUROPATHY
     Route: 048
     Dates: start: 20061023
  2. ALL OTHER THERAPEUTIC PRODUCTS [Concomitant]
  3. HUMALOG [Concomitant]
  4. LANTUS [Concomitant]
  5. LASIX [Concomitant]
  6. VESICARE [Concomitant]
  7. ISOSORBIDE [Concomitant]
  8. METFORMIN HCL [Concomitant]
  9. GABAPENTIN [Concomitant]
  10. PANADEINE CO [Concomitant]
  11. PLAVIX [Concomitant]
  12. POTASSIUM CHLORIDE [Concomitant]
  13. NORVASC [Concomitant]
  14. CLONAZEPAM [Concomitant]

REACTIONS (1)
  - BLISTER [None]
